FAERS Safety Report 6544086-7 (Version None)
Quarter: 2010Q1

REPORT INFORMATION
  Report Type: 
  Country: None (occurrence: None)
  Receive Date: 20100120
  Receipt Date: 20100114
  Transmission Date: 20100710
  Serious: No
  Sender: FDA-Public Use
  Company Number: US-B.I. PHARMACEUTICALS,INC./RIDGEFIELD-2010-BP-00535BP

PATIENT
  Sex: Female

DRUGS (5)
  1. SPIRIVA [Suspect]
     Indication: BRONCHITIS CHRONIC
     Dosage: 18 MCG
     Route: 055
     Dates: start: 20090301
  2. SPIRIVA [Suspect]
     Indication: ASTHMA
  3. EVISTA [Concomitant]
     Indication: OSTEOPOROSIS
  4. ALBUTEROL [Concomitant]
     Indication: BRONCHITIS CHRONIC
  5. ALBUTEROL [Concomitant]
     Indication: ASTHMA

REACTIONS (2)
  - EPISTAXIS [None]
  - NAUSEA [None]
